FAERS Safety Report 13785846 (Version 1)
Quarter: 2017Q3

REPORT INFORMATION
  Report Type: Spontaneous
  Country: US (occurrence: US)
  Receive Date: 20170725
  Receipt Date: 20170725
  Transmission Date: 20171127
  Serious: No
  Sender: FDA-Public Use
  Company Number: US-UNITED THERAPEUTICS-UNT-2017-006988

PATIENT
  Age: 34 Year
  Sex: Female
  Weight: 159.64 kg

DRUGS (3)
  1. TYVASO [Suspect]
     Active Substance: TREPROSTINIL
     Indication: PULMONARY ARTERIAL HYPERTENSION
     Dosage: 18-54 MICROGRAMS, QID
     Dates: start: 20150915, end: 201705
  2. OPSUMIT [Concomitant]
     Active Substance: MACITENTAN
     Indication: PRODUCT USED FOR UNKNOWN INDICATION
  3. REVATIO [Concomitant]
     Active Substance: SILDENAFIL CITRATE
     Indication: PRODUCT USED FOR UNKNOWN INDICATION

REACTIONS (10)
  - Dyspnoea [Unknown]
  - Nausea [Unknown]
  - Aphonia [Unknown]
  - Retching [Unknown]
  - Syncope [Unknown]
  - Incontinence [Unknown]
  - Feeling abnormal [Unknown]
  - Cough [Unknown]
  - Condition aggravated [Unknown]
  - Dizziness [Unknown]

NARRATIVE: CASE EVENT DATE: 201704
